FAERS Safety Report 7935080 (Version 2)
Quarter: 2013Q4

REPORT INFORMATION
  Report Type: Spontaneous
  Country: US (occurrence: US)
  Receive Date: 20110509
  Receipt Date: 20131211
  Transmission Date: 20140711
  Serious: No
  Sender: FDA-Public Use
  Company Number: US-JNJFOC-20110500458

PATIENT
  Age: 40 Year
  Sex: Male
  Weight: 99.79 kg

DRUGS (1)
  1. DURAGESIC [Suspect]
     Indication: PANCREATITIS
     Route: 062
     Dates: start: 2010

REACTIONS (3)
  - Drug dispensing error [Recovered/Resolved]
  - Product quality issue [Unknown]
  - Product physical issue [Unknown]
